FAERS Safety Report 7950912-7 (Version None)
Quarter: 2011Q4

REPORT INFORMATION
  Report Type: 
  Country: None (occurrence: None)
  Receive Date: 20111201
  Receipt Date: 20111122
  Transmission Date: 20120403
  Serious: No
  Sender: FDA-Public Use
  Company Number: US-BIOGENIDEC-2011BI029171

PATIENT
  Age: 52 Year
  Sex: Female

DRUGS (1)
  1. TYSABRI [Suspect]
     Indication: MULTIPLE SCLEROSIS
     Route: 042
     Dates: start: 20110523

REACTIONS (8)
  - FATIGUE [None]
  - HEADACHE [None]
  - ASTHENIA [None]
  - VISUAL IMPAIRMENT [None]
  - VIRAL INFECTION [None]
  - PYREXIA [None]
  - CYSTITIS [None]
  - MIGRAINE [None]
